FAERS Safety Report 7543936 (Version 4)
Quarter: 2013Q1

REPORT INFORMATION
  Report Type: Report from Study
  Country: JP (occurrence: JP)
  Receive Date: 20100817
  Receipt Date: 20130321
  Transmission Date: 20140127
  Serious: Yes (Death, Life-Threatening, Hospitalization, Other)
  Sender: FDA-Public Use
  Company Number: JP-GENZYME-THYM-1001738

PATIENT
  Age: 23 Year
  Sex: Female
  Weight: 44 kg

DRUGS (52)
  1. THYMOGLOBULIN [Suspect]
     Indication: BONE MARROW CONDITIONING REGIMEN
     Dosage: 45 MG, QD
     Route: 042
     Dates: start: 20090309, end: 20090312
  2. ACICLOVIR [Concomitant]
     Indication: ANTIVIRAL PROPHYLAXIS
     Dosage: UNK
     Route: 065
     Dates: start: 2008, end: 20090607
  3. ACICLOVIR [Concomitant]
     Dosage: UNK
     Dates: start: 20090709
  4. TRIMETHOPRIM SULFAMETHOXAZOLE [Concomitant]
     Indication: ANTIFUNGAL PROPHYLAXIS
     Dosage: UNK
     Route: 065
     Dates: start: 2008, end: 20090310
  5. TRIMETHOPRIM SULFAMETHOXAZOLE [Concomitant]
     Dosage: UNK
     Dates: start: 20090327
  6. URSODEOXYCHOLIC ACID [Concomitant]
     Indication: PROPHYLAXIS
     Dosage: UNK
     Route: 065
     Dates: start: 20090303, end: 20090628
  7. ITRACONAZOLE [Concomitant]
     Indication: ANTIFUNGAL PROPHYLAXIS
     Dosage: UNK
     Route: 065
     Dates: start: 2008, end: 20090413
  8. ITRACONAZOLE [Concomitant]
     Dosage: UNK
     Route: 065
     Dates: start: 20090731
  9. FAMOTIDINE [Concomitant]
     Indication: GASTRITIS PROPHYLAXIS
     Dosage: UNK
     Route: 065
     Dates: start: 2008, end: 20090719
  10. FAMOTIDINE [Concomitant]
     Dosage: UNK
     Dates: start: 20090730
  11. REBAMIPIDE [Concomitant]
     Indication: GASTRITIS PROPHYLAXIS
     Dosage: UNK
     Route: 065
     Dates: start: 2008, end: 20090719
  12. REBAMIPIDE [Concomitant]
     Dosage: UNK
     Route: 065
     Dates: start: 20090730
  13. ANTIBIOTICS-RESISTANT LACTIC ACID BACTERIAE [Concomitant]
     Indication: PROPHYLAXIS
     Dosage: UNK
     Route: 065
     Dates: start: 2008, end: 20090722
  14. ZOLPIDEM [Concomitant]
     Indication: INSOMNIA
     Dosage: UNK
     Route: 065
     Dates: start: 2008
  15. ISONIAZID [Concomitant]
     Indication: ANTIBIOTIC PROPHYLAXIS
     Dosage: UNK
     Route: 065
     Dates: start: 2008
  16. CIPROFLOXACIN [Concomitant]
     Indication: ANTIBIOTIC PROPHYLAXIS
     Dosage: UNK
     Route: 065
     Dates: start: 20090227, end: 20090312
  17. MAGNESIUM OXIDE [Concomitant]
     Indication: CONSTIPATION
     Dosage: UNK
     Route: 065
     Dates: start: 2008
  18. RISEDRONATE SODIUM [Concomitant]
     Indication: OSTEOPOROSIS PROPHYLAXIS
     Dosage: UNK
     Route: 065
     Dates: start: 2008, end: 20090327
  19. ACETAZOLAMIDE [Concomitant]
     Indication: PROPHYLAXIS
     Dosage: UNK
     Route: 065
     Dates: start: 20090306, end: 20090324
  20. CEOLAT [Concomitant]
     Indication: CONSTIPATION
     Dosage: UNK
     Route: 065
     Dates: start: 20090323
  21. CICLOSPORIN [Concomitant]
     Indication: PROPHYLAXIS AGAINST GRAFT VERSUS HOST DISEASE
     Dosage: UNK
     Route: 065
     Dates: start: 20090402, end: 20090703
  22. CICLOSPORIN [Concomitant]
     Dosage: UNK
     Route: 065
     Dates: start: 20090529, end: 20090703
  23. CICLOSPORIN [Concomitant]
     Dosage: UNK
     Route: 065
     Dates: start: 20090731
  24. SOYBEAN OIL [Concomitant]
     Indication: PROPHYLAXIS
     Dosage: UNK
     Route: 065
     Dates: start: 20090314, end: 20090422
  25. SOYBEAN OIL [Concomitant]
     Dosage: UNK
     Route: 065
     Dates: start: 20090724, end: 20090811
  26. MELPHALAN [Concomitant]
     Indication: BONE MARROW CONDITIONING REGIMEN
     Dosage: UNK
     Route: 065
     Dates: start: 20090310, end: 20090311
  27. FLUDARABINE PHOSPHATE [Concomitant]
     Indication: BONE MARROW CONDITIONING REGIMEN
     Dosage: 41 MG, QD
     Route: 065
     Dates: start: 20090303, end: 20090308
  28. GRANISETRON HYDROCHLORIDE [Concomitant]
     Indication: PROPHYLAXIS OF NAUSEA AND VOMITING
     Dosage: UNK
     Route: 065
     Dates: start: 20090303, end: 20090311
  29. HYDROCORTISONE SODIUM SUCCINATE [Concomitant]
     Indication: PROPHYLAXIS
     Dosage: UNK
     Route: 065
     Dates: start: 20090303, end: 20090306
  30. CYTARABINE [Concomitant]
     Indication: BONE MARROW CONDITIONING REGIMEN
     Dosage: UNK
     Route: 065
     Dates: start: 20090303, end: 20090306
  31. METHYLPREDNISOLONE SODIUM SUCCINATE [Concomitant]
     Indication: PREMEDICATION
     Dosage: UNK
     Route: 065
     Dates: start: 20090309, end: 20090406
  32. MIXED AMINO ACID CARBOHYDRATE ELECTROLYTE VITAMIN COMBINE [Concomitant]
     Indication: PROPHYLAXIS
     Dosage: UNK
     Route: 065
     Dates: start: 20090228, end: 20090505
  33. FILGRASTIM [Concomitant]
     Indication: COLONY STIMULATING FACTOR THERAPY
     Dosage: UNK
     Route: 065
     Dates: start: 20090520, end: 20090526
  34. FILGRASTIM [Concomitant]
     Indication: INFECTION PROPHYLAXIS
     Dosage: UNK
     Route: 065
     Dates: start: 20090611, end: 20090619
  35. HEPARIN SODIUM [Concomitant]
     Indication: PROPHYLAXIS
     Dosage: UNK
     Route: 065
     Dates: start: 20090228, end: 20090316
  36. HYDROCORTISONE SODIUM SUCCINATE [Concomitant]
     Indication: PREMEDICATION
     Dosage: UNK
     Route: 065
     Dates: start: 20090313, end: 20090313
  37. HYDROXYZINE PAMOATE [Concomitant]
     Indication: PREMEDICATION
     Dosage: UNK
     Route: 065
     Dates: start: 20090313, end: 20090313
  38. HAPTOGLOBINS [Concomitant]
     Indication: PREMEDICATION
     Dosage: UNK
     Route: 065
     Dates: start: 20090313, end: 20090313
  39. CARBAZOCHROME SODIUM SULFONATE [Concomitant]
     Indication: HAEMORRHAGE PROPHYLAXIS
     Dosage: UNK
     Route: 065
     Dates: start: 20090316
  40. GLYCERIN W [Concomitant]
     Indication: PROPHYLAXIS
     Dosage: UNK
     Route: 065
     Dates: start: 20090402, end: 20090402
  41. TACROLIMUS [Concomitant]
     Indication: PROPHYLAXIS AGAINST GRAFT VERSUS HOST DISEASE
     Dosage: UNK
     Route: 065
     Dates: start: 20090311, end: 20090402
  42. DALTEPARIN SODIUM [Concomitant]
     Indication: PROPHYLAXIS
     Dosage: UNK
     Route: 065
     Dates: start: 20090307, end: 20090324
  43. OMEPRAZOLE [Concomitant]
     Indication: HAEMORRHAGE PROPHYLAXIS
     Dosage: UNK
     Route: 065
     Dates: start: 20090719, end: 20090729
  44. DAIO-KANZO-TO [Concomitant]
     Indication: CONSTIPATION
     Dosage: UNK
     Route: 065
     Dates: start: 20090506
  45. VALACICLOVIR HYDROCHLORIDE [Concomitant]
     Indication: ANTIVIRAL PROPHYLAXIS
     Dosage: UNK
     Route: 065
     Dates: start: 20090607, end: 20090709
  46. CEFCAPENE PIVOXIL HYDROCHLORIDE [Concomitant]
     Indication: ANTIBIOTIC PROPHYLAXIS
     Dosage: UNK
     Route: 065
     Dates: start: 20090722, end: 20090724
  47. DOPAMINE HYDROCHLORIDE [Concomitant]
     Indication: HYPOTENSION
     Dosage: UNK
     Route: 065
     Dates: start: 20090313, end: 20090331
  48. PREDNISOLONE ACETATE [Concomitant]
     Indication: PROPHYLAXIS AGAINST GRAFT VERSUS HOST DISEASE
     Dosage: UNK
     Route: 065
     Dates: start: 20090407, end: 20090427
  49. CLOSTRIDIUM BUTYRICUM [Concomitant]
     Indication: PROPHYLAXIS
     Dosage: UNK
     Dates: start: 20090722
  50. CEFEPIME [Concomitant]
     Indication: INFECTION PROPHYLAXIS
     Dosage: UNK
     Route: 065
     Dates: start: 20090402, end: 20090405
  51. IMMUNOGLOBULIN G HUMAN [Concomitant]
     Indication: INFECTION PROPHYLAXIS
     Dosage: UNK
     Route: 065
     Dates: start: 20090724, end: 20090726
  52. PHENYTOIN [Concomitant]
     Indication: CONVULSION PROPHYLAXIS
     Dosage: UNK
     Route: 065
     Dates: start: 20090406, end: 20090415

REACTIONS (31)
  - Pericardial effusion [Fatal]
  - Cardiac tamponade [Fatal]
  - Venoocclusive liver disease [Recovered/Resolved]
  - Hepatic mass [Not Recovered/Not Resolved]
  - Convulsion [Recovered/Resolved]
  - Renal disorder [Fatal]
  - Electrolyte imbalance [Fatal]
  - Fluid retention [Fatal]
  - Blood lactate dehydrogenase increased [Fatal]
  - Hypercalcaemia [Recovered/Resolved]
  - Liver disorder [Fatal]
  - Thrombotic microangiopathy [Unknown]
  - Hyperglycaemia [Recovered/Resolved]
  - Tubulointerstitial nephritis [Unknown]
  - Altered state of consciousness [Unknown]
  - Enterocolitis [Recovered/Resolved]
  - Hypertension [Recovered/Resolved]
  - Acute graft versus host disease in skin [Recovered/Resolved]
  - Acute graft versus host disease in liver [Recovered/Resolved]
  - Acute graft versus host disease in intestine [Recovered/Resolved]
  - Klebsiella sepsis [Recovered/Resolved]
  - Pancytopenia [Fatal]
  - Anaphylactoid reaction [Recovered/Resolved]
  - Fungal infection [Unknown]
  - Cytomegalovirus test positive [Recovered/Resolved]
  - Cytomegalovirus infection [Recovered/Resolved]
  - Pseudomembranous colitis [Recovered/Resolved]
  - Thrombocytopenia [Unknown]
  - Constipation [Recovered/Resolved]
  - Hypoglycaemia [Recovered/Resolved]
  - Graft versus host disease [Fatal]
